FAERS Safety Report 8215567-5 (Version None)
Quarter: 2012Q1

REPORT INFORMATION
  Report Type: 
  Country: None (occurrence: None)
  Receive Date: 20120316
  Receipt Date: 20120306
  Transmission Date: 20120608
  Serious: No
  Sender: FDA-Public Use
  Company Number: JP-FRI-1000028736

PATIENT
  Sex: Female

DRUGS (4)
  1. NEXIUM [Concomitant]
     Dosage: 20 MG
     Route: 048
     Dates: start: 20120123
  2. MYONAL [Concomitant]
     Dosage: 100 MG
     Route: 048
     Dates: start: 20120123
  3. LEXAPRO [Suspect]
     Indication: DEPRESSION
     Dosage: 10 MG
     Route: 048
     Dates: start: 20120220, end: 20120220
  4. SELBEX [Concomitant]
     Dosage: 180 MG
     Route: 048
     Dates: start: 20120123

REACTIONS (4)
  - VOMITING [None]
  - NAUSEA [None]
  - HEADACHE [None]
  - FEELING ABNORMAL [None]
